FAERS Safety Report 7657574-7 (Version None)
Quarter: 2011Q3

REPORT INFORMATION
  Report Type: 
  Country: None (occurrence: None)
  Receive Date: 20110804
  Receipt Date: 20110803
  Transmission Date: 20111222
  Serious: Yes (Hospitalization)
  Sender: FDA-Public Use
  Company Number: CO-B.I. PHARMACEUTICALS,INC./RIDGEFIELD-2011-RA-00246RA

PATIENT
  Age: 72 Year
  Sex: Male
  Weight: 95 kg

DRUGS (7)
  1. NIFEDIPINA [Concomitant]
  2. FUROSEMIDA [Concomitant]
     Indication: HYPERTENSION
  3. GLYBURIDE [Concomitant]
     Indication: DIABETES MELLITUS
  4. SPIRIVA [Suspect]
     Indication: CHRONIC OBSTRUCTIVE PULMONARY DISEASE
     Dosage: 2 PUFFS DAILY
     Route: 055
     Dates: start: 20110601
  5. ALBUTEROL [Concomitant]
     Indication: CHRONIC OBSTRUCTIVE PULMONARY DISEASE
  6. METFORMIN HCL [Concomitant]
     Indication: DIABETES MELLITUS
  7. OMEPRAZOLE [Concomitant]
     Indication: GASTRITIS

REACTIONS (1)
  - CHRONIC OBSTRUCTIVE PULMONARY DISEASE [None]
